FAERS Safety Report 10830398 (Version 2)
Quarter: 2015Q2

REPORT INFORMATION
  Report Type: Spontaneous
  Country: US (occurrence: US)
  Receive Date: 20150219
  Receipt Date: 20150407
  Transmission Date: 20150821
  Serious: No
  Sender: FDA-Public Use
  Company Number: US-PFIZER INC-2015060522

PATIENT
  Sex: Male
  Weight: 110 kg

DRUGS (2)
  1. AVODART [Suspect]
     Active Substance: DUTASTERIDE
  2. SPIRONOLACTONE. [Suspect]
     Active Substance: SPIRONOLACTONE
     Dosage: UNK

REACTIONS (2)
  - Drug hypersensitivity [Recovered/Resolved with Sequelae]
  - Gynaecomastia [Recovered/Resolved with Sequelae]
